FAERS Safety Report 4497264-5 (Version None)
Quarter: 2004Q4

REPORT INFORMATION
  Report Type: 
  Country: None (occurrence: None)
  Receive Date: 20041104
  Receipt Date: 20041020
  Transmission Date: 20050328
  Serious: Yes (Hospitalization)
  Sender: FDA-Public Use
  Company Number: 239962

PATIENT
  Sex: Male

DRUGS (1)
  1. NOVOLIN 30R CHU FLEXPEN (INSULIN HUMAN) [Suspect]
     Indication: INSULIN-REQUIRING TYPE II DIABETES MELLITUS
     Dosage: 20 IU, QD, SUBCUTANEOUS
     Route: 058
     Dates: start: 20040401, end: 20041010

REACTIONS (1)
  - DRUG ERUPTION [None]
